FAERS Safety Report 9297127 (Version 1)
Quarter: 2013Q2

REPORT INFORMATION
  Report Type: Spontaneous
  Country: US (occurrence: US)
  Receive Date: 20130520
  Receipt Date: 20130520
  Transmission Date: 20140414
  Serious: Yes (Other)
  Sender: FDA-Public Use
  Company Number: US-AMGEN-USASP2013033965

PATIENT
  Age: 87 Year
  Sex: Male

DRUGS (3)
  1. PROLIA [Suspect]
     Indication: PRODUCT USED FOR UNKNOWN INDICATION
     Dosage: UNK
     Dates: start: 2012
  2. NORVASC [Concomitant]
  3. LISINOPRIL [Concomitant]

REACTIONS (8)
  - Spinal compression fracture [Unknown]
  - Mobility decreased [Unknown]
  - Muscle spasms [Unknown]
  - Paraesthesia [Unknown]
  - Back pain [Unknown]
  - Incontinence [Unknown]
  - Temporomandibular joint syndrome [Unknown]
  - Arthralgia [Unknown]
